FAERS Safety Report 12614065 (Version 6)
Quarter: 2016Q4

REPORT INFORMATION
  Report Type: Report from Study
  Country: FR (occurrence: FR)
  Receive Date: 20160802
  Receipt Date: 20161115
  Transmission Date: 20170207
  Serious: Yes (Hospitalization, Other)
  Sender: FDA-Public Use
  Company Number: FR-PFIZER INC-2016356169

PATIENT
  Age: 68 Year
  Sex: Female
  Weight: 74 kg

DRUGS (8)
  1. PALBOCICLIB [Suspect]
     Active Substance: PALBOCICLIB
     Dosage: 125 MG, DAILY
     Route: 048
     Dates: start: 20161003
  2. PALBOCICLIB [Suspect]
     Active Substance: PALBOCICLIB
     Dosage: 125 MG, DAILY
     Route: 048
     Dates: start: 20160808
  3. IMOVANE [Concomitant]
     Active Substance: ZOPICLONE
     Indication: INSOMNIA
     Dosage: UNK
     Route: 048
  4. PALBOCICLIB [Suspect]
     Active Substance: PALBOCICLIB
     Indication: BREAST CANCER METASTATIC
     Dosage: 125 MG, DAILY
     Route: 048
     Dates: start: 20160708, end: 20160718
  5. NOZINAN /00038601/ [Concomitant]
     Active Substance: LEVOMEPROMAZINE
     Indication: DEPRESSION
     Dosage: UNK
     Route: 048
  6. XGEVA [Concomitant]
     Active Substance: DENOSUMAB
     Indication: METASTASIS
     Dosage: 120 MG, UNK
     Route: 058
  7. FULVESTRANT [Suspect]
     Active Substance: FULVESTRANT
     Indication: BREAST CANCER METASTATIC
     Dosage: 500 MG, CYCLIC ON DAY 1
     Dates: start: 20160708
  8. LEVOTHYROX [Concomitant]
     Active Substance: LEVOTHYROXINE
     Indication: HYPOTHYROIDISM
     Dosage: 125 UG, UNK
     Route: 048

REACTIONS (2)
  - Neutropenia [Unknown]
  - Pericarditis [Recovered/Resolved]

NARRATIVE: CASE EVENT DATE: 20160718
